FAERS Safety Report 7822695-2 (Version None)
Quarter: 2011Q4

REPORT INFORMATION
  Report Type: 
  Country: None (occurrence: None)
  Receive Date: 20111018
  Receipt Date: 20111012
  Transmission Date: 20120403
  Serious: Yes (Other)
  Sender: FDA-Public Use
  Company Number: US-MERCK-1108USA03105

PATIENT
  Age: 59 Year
  Sex: Female

DRUGS (2)
  1. COZAAR [Suspect]
     Indication: BLOOD PRESSURE
     Route: 048
  2. COZAAR [Suspect]
     Route: 048
     Dates: start: 20100101

REACTIONS (4)
  - RETINOPATHY [None]
  - PHOTOSENSITIVITY REACTION [None]
  - DRY EYE [None]
  - VISUAL ACUITY REDUCED [None]
